FAERS Safety Report 6263038-8 (Version None)
Quarter: 2009Q3

REPORT INFORMATION
  Report Type: 
  Country: None (occurrence: None)
  Receive Date: 20090708
  Receipt Date: 20090708
  Transmission Date: 20100115
  Serious: Yes (Disabling, Other)
  Sender: FDA-Public Use
  Company Number: None

PATIENT
  Sex: Female
  Weight: 73.9363 kg

DRUGS (1)
  1. LUPRON [Suspect]
     Dosage: 11.25 (ADULT) EVERY 28 DAYS INJECTION

REACTIONS (12)
  - ABASIA [None]
  - ARTHRALGIA [None]
  - BACK PAIN [None]
  - DRUG DISPENSING ERROR [None]
  - GAIT DISTURBANCE [None]
  - HYPOAESTHESIA [None]
  - MUSCULAR WEAKNESS [None]
  - OVERDOSE [None]
  - PAIN [None]
  - PAIN IN EXTREMITY [None]
  - WEIGHT INCREASED [None]
  - WHEELCHAIR USER [None]
